FAERS Safety Report 19456301 (Version 2)
Quarter: 2021Q3

REPORT INFORMATION
  Report Type: Spontaneous
  Country: IE (occurrence: IE)
  Receive Date: 20210624
  Receipt Date: 20210906
  Transmission Date: 20211014
  Serious: Yes (Life-Threatening, Hospitalization, Congenital Anomaly, Other)
  Sender: FDA-Public Use
  Company Number: IE-LUPIN PHARMACEUTICALS INC.-2021-09708

PATIENT
  Sex: Female
  Weight: 2.16 kg

DRUGS (5)
  1. FLUOXETINE [Suspect]
     Active Substance: FLUOXETINE HYDROCHLORIDE
     Indication: DEPRESSION
     Dosage: 60 MILLIGRAM
     Route: 064
  2. FLUOXETINE [Suspect]
     Active Substance: FLUOXETINE HYDROCHLORIDE
     Dosage: 20 MILLIGRAM
     Route: 064
  3. AMLODIPINE AND VALSARTAN TABLETS [Suspect]
     Active Substance: AMLODIPINE\VALSARTAN
     Indication: ESSENTIAL HYPERTENSION
     Dosage: UNK
     Route: 064
  4. VALSARTAN. [Suspect]
     Active Substance: VALSARTAN
     Indication: HYPERTENSION
     Dosage: UNK
     Route: 065
  5. LABETALOL [Suspect]
     Active Substance: LABETALOL\LABETALOL HYDROCHLORIDE
     Indication: HYPERTENSION
     Dosage: 200 MILLIGRAM, BID
     Route: 065

REACTIONS (23)
  - Hypoalbuminaemia [Recovered/Resolved]
  - Oedema [Recovered/Resolved]
  - Accidental exposure to product [Recovering/Resolving]
  - Intestinal malrotation [Recovered/Resolved]
  - Failure to thrive [Recovered/Resolved]
  - Atrial septal defect [Recovering/Resolving]
  - Hypocalcaemia [Recovered/Resolved]
  - Foetal exposure during pregnancy [Unknown]
  - Metabolic acidosis [Recovered/Resolved]
  - Ventricular septal defect [Recovering/Resolving]
  - Hyponatraemia [Recovered/Resolved]
  - Hypertension [Recovered/Resolved]
  - Chronic kidney disease [Recovering/Resolving]
  - Anaemia [Recovered/Resolved]
  - Premature baby [Unknown]
  - Low birth weight baby [Unknown]
  - Acute respiratory failure [Recovered/Resolved]
  - Toxicity to various agents [Recovered/Resolved]
  - Extremity contracture [Recovered/Resolved]
  - Patent ductus arteriosus [Recovering/Resolving]
  - Cardiac failure [Recovered/Resolved]
  - Tricuspid valve incompetence [Recovering/Resolving]
  - Anuria [Recovered/Resolved]
